FAERS Safety Report 6804411-6 (Version None)
Quarter: 2010Q2

REPORT INFORMATION
  Report Type: 
  Country: None (occurrence: None)
  Receive Date: 20100628
  Receipt Date: 20070417
  Transmission Date: 20101027
  Serious: No
  Sender: FDA-Public Use
  Company Number: US-PFIZER INC-2007011369

PATIENT
  Sex: Female
  Weight: 104.33 kg

DRUGS (2)
  1. GENOTROPIN [Suspect]
     Indication: GROWTH HORMONE DEFICIENCY
     Dates: start: 20061001
  2. IBUPROFEN [Concomitant]

REACTIONS (1)
  - SWELLING [None]
